FAERS Safety Report 22964158 (Version 3)
Quarter: 2025Q4

REPORT INFORMATION
  Report Type: Spontaneous
  Country: GB (occurrence: GB)
  Receive Date: 20230921
  Receipt Date: 20251120
  Transmission Date: 20260117
  Serious: Yes (Life-Threatening, Hospitalization, Other)
  Sender: BAXTER
  Company Number: GB-BAXTER-2023BAX031071

PATIENT
  Age: 77 Year
  Sex: Female

DRUGS (3)
  1. TRANSDERM SCOP [Suspect]
     Active Substance: SCOPOLAMINE
     Indication: Salivary hypersecretion
     Dosage: ONE FULL PATCH PER THREE DAYS
     Route: 062
     Dates: start: 20170118
  2. TRANSDERM SCOP [Suspect]
     Active Substance: SCOPOLAMINE
     Indication: Dysphagia
  3. TRANSDERM SCOP [Suspect]
     Active Substance: SCOPOLAMINE
     Indication: Respiratory disorder prophylaxis

REACTIONS (11)
  - Pneumonia aspiration [Unknown]
  - Clavicle fracture [Unknown]
  - Disorganised speech [Recovered/Resolved]
  - Disorganised speech [Recovered/Resolved]
  - Fall [Unknown]
  - Pain [Unknown]
  - Crying [Unknown]
  - Drug intolerance [Unknown]
  - Amnesia [Unknown]
  - Off label use [Unknown]
  - Product supply issue [Unknown]

NARRATIVE: CASE EVENT DATE: 20170118
